FAERS Safety Report 11774130 (Version 1)
Quarter: 2015Q4

REPORT INFORMATION
  Report Type: Spontaneous
  Country: US (occurrence: US)
  Receive Date: 20151124
  Receipt Date: 20151124
  Transmission Date: 20160304
  Serious: No
  Sender: FDA-Public Use
  Company Number: US-PERNIX THERAPEUTICS-2015PT000220

PATIENT

DRUGS (6)
  1. LYRICA [Suspect]
     Active Substance: PREGABALIN
     Indication: FIBROMYALGIA
     Dosage: UNK, TWICE DAILY
     Route: 048
     Dates: start: 2007, end: 200805
  2. IBUPROFEN. [Suspect]
     Active Substance: IBUPROFEN
  3. HYDROCODONE BITARTRATE. [Suspect]
     Active Substance: HYDROCODONE BITARTRATE
     Indication: PRODUCT USED FOR UNKNOWN INDICATION
  4. ALEVE [Suspect]
     Active Substance: NAPROXEN SODIUM
  5. ASPIRIN                            /00002701/ [Suspect]
     Active Substance: ASPIRIN
  6. TYLENOL [Concomitant]
     Active Substance: ACETAMINOPHEN
     Indication: ARTHRALGIA
     Dosage: 1300 MG, TWICE DAILY

REACTIONS (2)
  - Drug ineffective [Unknown]
  - Somnolence [Unknown]
